FAERS Safety Report 21207321 (Version 3)
Quarter: 2022Q3

REPORT INFORMATION
  Report Type: Spontaneous
  Country: TR (occurrence: TR)
  Receive Date: 20220812
  Receipt Date: 20220829
  Transmission Date: 20221027
  Serious: Yes (Other)
  Sender: FDA-Public Use
  Company Number: TR-PFIZER INC-202201050939

PATIENT
  Age: 55 Year
  Sex: Female
  Weight: 84 kg

DRUGS (1)
  1. LIPITOR [Suspect]
     Active Substance: ATORVASTATIN CALCIUM
     Indication: Blood cholesterol increased
     Dosage: 20 MG, DAILY
     Route: 048
     Dates: start: 2022, end: 2022

REACTIONS (3)
  - Abdominal pain upper [Recovered/Resolved]
  - Chromaturia [Recovered/Resolved]
  - Blood urine [Recovered/Resolved]

NARRATIVE: CASE EVENT DATE: 20220101
